FAERS Safety Report 7534550-6 (Version None)
Quarter: 2011Q2

REPORT INFORMATION
  Report Type: 
  Country: None (occurrence: None)
  Receive Date: 20110609
  Receipt Date: 20090619
  Transmission Date: 20111010
  Serious: Yes (Death)
  Sender: FDA-Public Use
  Company Number: PHHY2009JP01568

PATIENT
  Sex: Male

DRUGS (7)
  1. MAGNESIUM OXIDE [Concomitant]
     Dosage: 2 G, UNK
     Route: 048
     Dates: start: 20070913, end: 20080121
  2. VALSARTAN [Suspect]
     Indication: HYPERTENSION
     Dosage: 80 MG, QD
     Route: 048
     Dates: start: 20070918
  3. FAMOTIDINE [Concomitant]
     Dosage: 20 MG, UNK
     Route: 048
     Dates: start: 20070916, end: 20080218
  4. BIO THREE [Concomitant]
     Dosage: 6 DF, UNK
     Route: 048
     Dates: start: 20070913, end: 20080121
  5. PURSENNID                               /SCH/ [Concomitant]
     Dosage: 12 MG, UNK
     Route: 048
     Dates: start: 20070910
  6. CARVEDILOL [Concomitant]
     Indication: HYPERTENSION
     Dosage: 10 MG, UNK
     Route: 048
     Dates: start: 20070915
  7. DAIO-KANZO-TO [Concomitant]
     Dosage: 15 G, UNK
     Route: 048
     Dates: start: 20070914, end: 20071008

REACTIONS (4)
  - CONDITION AGGRAVATED [None]
  - HEPATIC NEOPLASM [None]
  - GASTRIC CANCER [None]
  - METASTASES TO LIVER [None]
